FAERS Safety Report 6149080-6 (Version None)
Quarter: 2009Q2

REPORT INFORMATION
  Report Type: 
  Country: None (occurrence: None)
  Receive Date: 20090409
  Receipt Date: 20090401
  Transmission Date: 20091009
  Serious: Yes (Death)
  Sender: FDA-Public Use
  Company Number: US-PFIZER INC-2008161259

PATIENT
  Sex: Male
  Weight: 118.38 kg

DRUGS (2)
  1. SUTENT [Suspect]
     Indication: METASTATIC MALIGNANT MELANOMA
     Dosage: 25 MG, DAILY, EVERY DAY
     Dates: start: 20081105, end: 20081221
  2. CARMUSTINE [Concomitant]

REACTIONS (2)
  - DISEASE PROGRESSION [None]
  - METASTATIC MALIGNANT MELANOMA [None]
